FAERS Safety Report 9982530 (Version 1)
Quarter: 2014Q1

REPORT INFORMATION
  Report Type: Spontaneous
  Country: US (occurrence: US)
  Receive Date: 20140307
  Receipt Date: 20140307
  Transmission Date: 20141002
  Serious: Yes (Hospitalization)
  Sender: FDA-Public Use
  Company Number: US-ABBVIE-13P-163-1179683-00

PATIENT
  Age: 60 Year
  Sex: Female
  Weight: 92.62 kg

DRUGS (6)
  1. HUMIRA [Suspect]
     Indication: PSORIATIC ARTHROPATHY
     Dates: start: 2007, end: 201101
  2. HUMIRA [Suspect]
     Indication: PSORIATIC ARTHROPATHY
     Dates: start: 201102
  3. TRILIPIX [Concomitant]
     Indication: BLOOD CHOLESTEROL INCREASED
  4. LEVAMIRE [Concomitant]
     Indication: DIABETES MELLITUS
  5. NOVOLOG [Concomitant]
     Indication: DIABETES MELLITUS
  6. LYRICA [Concomitant]
     Indication: PAIN

REACTIONS (1)
  - Coronary artery bypass [Recovered/Resolved]
